FAERS Safety Report 17405351 (Version 3)
Quarter: 2021Q1

REPORT INFORMATION
  Report Type: Spontaneous
  Country: US (occurrence: US)
  Receive Date: 20200212
  Receipt Date: 20210210
  Transmission Date: 20210419
  Serious: Yes (Other)
  Sender: FDA-Public Use
  Company Number: US-ASTRAZENECA-2020SE18774

PATIENT
  Age: 29760 Day
  Sex: Male
  Weight: 79.4 kg

DRUGS (38)
  1. WARFARIN [Concomitant]
     Active Substance: WARFARIN
  2. HYDRALAZINE [Concomitant]
     Active Substance: HYDRALAZINE HYDROCHLORIDE
  3. KONSYL?D [Concomitant]
  4. GUAFENESIN [Concomitant]
     Active Substance: GUAIFENESIN
  5. VITAMIN D2 [Concomitant]
     Active Substance: ERGOCALCIFEROL
  6. ISOSORBIDE DINITRATE. [Concomitant]
     Active Substance: ISOSORBIDE DINITRATE
  7. ALFUZOSIN [Concomitant]
     Active Substance: ALFUZOSIN
  8. ASPIRIN. [Concomitant]
     Active Substance: ASPIRIN
     Indication: CARDIAC DISORDER
     Dates: start: 2004
  9. MOVIPREP [Concomitant]
     Active Substance: ASCORBIC ACID\POLYETHYLENE GLYCOL 3350\POTASSIUM CHLORIDE\SODIUM ASCORBATE\SODIUM CHLORIDE\SODIUM SULFATE
  10. UROXATRAL [Concomitant]
     Active Substance: ALFUZOSIN HYDROCHLORIDE
  11. METHYLPREDNISOLONE. [Concomitant]
     Active Substance: METHYLPREDNISOLONE
  12. DESOXIMETASONE. [Concomitant]
     Active Substance: DESOXIMETASONE
  13. AMOXICILLIN. [Concomitant]
     Active Substance: AMOXICILLIN
     Indication: INFECTION
     Dates: start: 2017
  14. NASONEX [Concomitant]
     Active Substance: MOMETASONE FUROATE
  15. LEVAQUIN [Concomitant]
     Active Substance: LEVOFLOXACIN
  16. SIMVASTATIN. [Concomitant]
     Active Substance: SIMVASTATIN
     Indication: BLOOD CHOLESTEROL INCREASED
     Dates: start: 2010
  17. EPOGEN [Concomitant]
     Active Substance: ERYTHROPOIETIN
  18. PREDNISONE. [Concomitant]
     Active Substance: PREDNISONE
  19. BENZONATATE. [Concomitant]
     Active Substance: BENZONATATE
  20. NEXIUM [Suspect]
     Active Substance: ESOMEPRAZOLE MAGNESIUM
     Indication: GASTROOESOPHAGEAL REFLUX DISEASE
     Route: 048
     Dates: start: 1996, end: 2017
  21. CARVEDILOL. [Concomitant]
     Active Substance: CARVEDILOL
  22. FUROSEMIDE. [Concomitant]
     Active Substance: FUROSEMIDE
  23. BISACODYL. [Concomitant]
     Active Substance: BISACODYL
  24. FLOMAX [Concomitant]
     Active Substance: TAMSULOSIN HYDROCHLORIDE
  25. NEXIUM [Suspect]
     Active Substance: ESOMEPRAZOLE MAGNESIUM
     Indication: GASTROOESOPHAGEAL REFLUX DISEASE
     Route: 048
     Dates: start: 2001, end: 2017
  26. SYNTHROID [Concomitant]
     Active Substance: LEVOTHYROXINE SODIUM
     Indication: HYPOTHYROIDISM
     Dates: start: 2014
  27. LEVOXYL [Concomitant]
     Active Substance: LEVOTHYROXINE SODIUM
  28. PRADAXA [Concomitant]
     Active Substance: DABIGATRAN ETEXILATE MESYLATE
  29. TOBRAMYCIN. [Concomitant]
     Active Substance: TOBRAMYCIN
  30. MECLIZINE [Concomitant]
     Active Substance: MECLIZINE HYDROCHLORIDE
  31. TRIAMCINOLONE [Concomitant]
     Active Substance: TRIAMCINOLONE
  32. TAMSULOSIN [Concomitant]
     Active Substance: TAMSULOSIN
  33. LIDOCAINE. [Concomitant]
     Active Substance: LIDOCAINE
  34. NEXIUM [Suspect]
     Active Substance: ESOMEPRAZOLE MAGNESIUM
     Indication: GASTROOESOPHAGEAL REFLUX DISEASE
     Route: 048
     Dates: start: 20130606
  35. SPIRONOLACTONE. [Concomitant]
     Active Substance: SPIRONOLACTONE
  36. COREG [Concomitant]
     Active Substance: CARVEDILOL
  37. AZITHROMYCIN ANHYDROUS. [Concomitant]
     Active Substance: AZITHROMYCIN ANHYDROUS
  38. EFUDEX [Concomitant]
     Active Substance: FLUOROURACIL

REACTIONS (2)
  - Nephrogenic anaemia [Unknown]
  - Chronic kidney disease [Not Recovered/Not Resolved]

NARRATIVE: CASE EVENT DATE: 20120813
